FAERS Safety Report 5515044-6 (Version None)
Quarter: 2007Q4

REPORT INFORMATION
  Report Type: 
  Country: None (occurrence: None)
  Receive Date: 20071113
  Receipt Date: 20061128
  Transmission Date: 20080405
  Serious: No
  Sender: FDA-Public Use
  Company Number: A0629013A

PATIENT
  Age: 76 Year
  Sex: Male

DRUGS (5)
  1. COREG [Suspect]
     Dosage: 6.25MG TWICE PER DAY
     Route: 048
     Dates: start: 20060601
  2. UNSPECIFIED MEDICATION [Concomitant]
  3. LEVOTHYROXINE SODIUM [Concomitant]
  4. VYTORIN [Concomitant]
  5. COLCHICINE [Concomitant]

REACTIONS (1)
  - COUGH [None]
